FAERS Safety Report 6097579-3 (Version None)
Quarter: 2009Q1

REPORT INFORMATION
  Report Type: 
  Country: None (occurrence: None)
  Receive Date: 20090227
  Receipt Date: 20081205
  Transmission Date: 20090719
  Serious: No
  Sender: FDA-Public Use
  Company Number: A0759311A

PATIENT
  Sex: Female

DRUGS (2)
  1. IMITREX [Suspect]
     Indication: MIGRAINE
     Dosage: 6MG VARIABLE DOSE
     Route: 058
  2. SUMATRIPTAN SUCCINATE [Suspect]
     Dosage: 6MG SINGLE DOSE
     Route: 058

REACTIONS (2)
  - DRUG INEFFECTIVE [None]
  - VERTIGO [None]
